FAERS Safety Report 9447858 (Version 2)
Quarter: 2013Q3

REPORT INFORMATION
  Report Type: Spontaneous
  Country: US (occurrence: US)
  Receive Date: 20130808
  Receipt Date: 20130823
  Transmission Date: 20140515
  Serious: Yes (Death, Hospitalization)
  Sender: FDA-Public Use
  Company Number: US-BRISTOL-MYERS SQUIBB COMPANY-19156942

PATIENT
  Age: 73 Year
  Sex: Male

DRUGS (4)
  1. NULOJIX [Suspect]
     Indication: RENAL TRANSPLANT
     Dosage: 750MG (10 MG/KG) Q MONTH 02APR-21JUN13?375MG (5 MG/KG) Q MONTH 23JUL13 (LAST DOSE)
     Route: 042
     Dates: start: 20130402, end: 20130723
  2. BASILIXIMAB [Suspect]
     Indication: RENAL TRANSPLANT
     Route: 042
     Dates: start: 20130402, end: 20130405
  3. TACROLIMUS [Suspect]
     Indication: RENAL TRANSPLANT
     Dosage: 4 MG BID 03APR-5APR13?5 MG 6APR- 13MAY13?3 MG 13-22MAY13?2 MG 23MAY-10JUN13?1 MG 10JUN-02JUL13
     Route: 048
     Dates: start: 20130402, end: 20130702
  4. PREDNISONE [Suspect]
     Indication: RENAL TRANSPLANT
     Route: 048
     Dates: start: 20130405, end: 20130727

REACTIONS (2)
  - Brain abscess [Fatal]
  - Meningoencephalitis amoebic [Fatal]
